FAERS Safety Report 6540077-0 (Version None)
Quarter: 2010Q1

REPORT INFORMATION
  Report Type: 
  Country: None (occurrence: None)
  Receive Date: 20100115
  Receipt Date: 20100113
  Transmission Date: 20100710
  Serious: Yes (Other)
  Sender: FDA-Public Use
  Company Number: DE-ROXANE LABORATORIES, INC.-2010-RO-00016RO

PATIENT
  Age: 64 Year
  Sex: Male

DRUGS (11)
  1. MYCOPHENOLATE MOFETIL [Suspect]
     Indication: IMMUNOSUPPRESSION
  2. PREDNISONE [Suspect]
     Indication: ACUTE GRAFT VERSUS HOST DISEASE IN SKIN
  3. PREDNISONE [Suspect]
     Indication: ACUTE GRAFT VERSUS HOST DISEASE IN INTESTINE
     Dosage: 20 MG
  4. FLUDARABINE [Suspect]
     Indication: STEM CELL TRANSPLANT
  5. CYCLOSPORINE [Suspect]
     Indication: IMMUNOSUPPRESSION
  6. CYCLOSPORINE [Suspect]
  7. CIPROFLOXACIN [Suspect]
     Indication: ANTIBIOTIC PROPHYLAXIS
     Dosage: 1000 MG
  8. VORICONAZOLE [Suspect]
     Indication: ANTIFUNGAL PROPHYLAXIS
     Dosage: 400 MG
     Route: 048
  9. CASPOFUNGIN [Suspect]
     Indication: BRONCHOPULMONARY ASPERGILLOSIS
     Dosage: 280 MG
  10. CASPOFUNGIN [Suspect]
     Dosage: 200 MG
  11. POSACONAZOLE [Concomitant]
     Indication: BRONCHOPULMONARY ASPERGILLOSIS
     Dosage: 800 MG

REACTIONS (3)
  - ACUTE GRAFT VERSUS HOST DISEASE IN INTESTINE [None]
  - ACUTE GRAFT VERSUS HOST DISEASE IN SKIN [None]
  - BRONCHOPULMONARY ASPERGILLOSIS [None]
